FAERS Safety Report 14991817 (Version 4)
Quarter: 2019Q1

REPORT INFORMATION
  Report Type: Spontaneous
  Country: DE (occurrence: DE)
  Receive Date: 20180608
  Receipt Date: 20190315
  Transmission Date: 20190417
  Serious: Yes (Other)
  Sender: FDA-Public Use
  Company Number: PHHY2018DE017059

PATIENT
  Age: 79 Year
  Sex: Male
  Weight: 77 kg

DRUGS (5)
  1. DOCETAXEL. [Suspect]
     Active Substance: DOCETAXEL
     Indication: LUNG ADENOCARCINOMA
     Dosage: 75 MG/M2, QD (DAILY DOSE: 75MG/M2 PER BODY SURFACE AREA (BSA))
     Route: 042
  2. VARGATEF [Suspect]
     Active Substance: NINTEDANIB
     Indication: LUNG ADENOCARCINOMA
     Dosage: 400 MG, QD
     Route: 048
     Dates: start: 20160404, end: 20160606
  3. VARGATEF [Suspect]
     Active Substance: NINTEDANIB
     Dosage: 200 MG, QD
     Route: 048
     Dates: start: 20160405
  4. DOCETAXEL. [Suspect]
     Active Substance: DOCETAXEL
     Dosage: DAILY DOSE: 60MG/M2 PER BODY SURFACE AREA (BSA); FORMULATION : LIQUID
     Route: 042
  5. VARGATEF [Suspect]
     Active Substance: NINTEDANIB
     Dosage: 400 MG, QD
     Route: 048
     Dates: start: 20160405

REACTIONS (7)
  - Muscular weakness [Recovered/Resolved]
  - Chills [Recovered/Resolved]
  - Chills [Recovered/Resolved]
  - Alopecia [Unknown]
  - Muscular weakness [Recovered/Resolved]
  - Fatigue [Recovered/Resolved]
  - Febrile neutropenia [Recovered/Resolved]

NARRATIVE: CASE EVENT DATE: 20160504
